FAERS Safety Report 9478438 (Version 2)
Quarter: 2013Q3

REPORT INFORMATION
  Report Type: Report from Study
  Country: DE (occurrence: DE)
  Receive Date: 20130827
  Receipt Date: 20130906
  Transmission Date: 20140515
  Serious: Yes (Hospitalization)
  Sender: FDA-Public Use
  Company Number: DE-UCBSA-096098

PATIENT
  Age: 60 Year
  Sex: Female
  Weight: 64 kg

DRUGS (7)
  1. VIMPAT [Suspect]
     Indication: EPILEPSY
     Route: 048
     Dates: start: 20130728
  2. SIMVASTATIN [Concomitant]
     Route: 048
  3. ORFIRIL LONG [Concomitant]
     Route: 048
     Dates: start: 201307
  4. L-THYROXIN [Concomitant]
     Route: 048
     Dates: start: 2003
  5. CONCOR [Concomitant]
     Route: 048
  6. PANTAZOL [Concomitant]
     Route: 048
  7. ASS [Concomitant]
     Route: 048

REACTIONS (1)
  - Atonic seizures [Recovering/Resolving]
